FAERS Safety Report 8661019 (Version 2)
Quarter: 2012Q4

REPORT INFORMATION
  Report Type: 
  Country: DE (occurrence: DE)
  Receive Date: 20120711
  Receipt Date: 20120830
  Transmission Date: 20130627
  Serious: Yes (Hospitalization, Other)
  Sender: FDA-Public Use
  Company Number: DE-JNJFOC-20120702620

PATIENT
  Age: 82 Year
  Sex: Male
  Weight: 60 kg

DRUGS (7)
  1. XARELTO [Suspect]
     Indication: CEREBROVASCULAR ACCIDENT PROPHYLAXIS
     Route: 048
     Dates: start: 20120509
  2. LISINOPRIL [Concomitant]
     Indication: CARDIAC FAILURE
     Dosage: Dosage: OM
  3. BISOPROLOL [Concomitant]
     Indication: CARDIAC FAILURE
     Dosage: Dosage: OM
  4. SIMVASTATIN [Concomitant]
  5. ALLOPURINOL [Concomitant]
  6. FOSTER [Concomitant]
     Indication: CHRONIC OBSTRUCTIVE PULMONARY DISEASE
  7. XARELTO [Suspect]
     Indication: ATRIAL FIBRILLATION
     Route: 048
     Dates: start: 20120509

REACTIONS (1)
  - Embolic stroke [Unknown]
